FAERS Safety Report 9697028 (Version 2)
Quarter: 2013Q4

REPORT INFORMATION
  Report Type: Report from Study
  Country: UY (occurrence: UY)
  Receive Date: 20131120
  Receipt Date: 20131204
  Transmission Date: 20140711
  Serious: Yes (Death)
  Sender: FDA-Public Use
  Company Number: UY-ROCHE-1306812

PATIENT
  Age: 66 Year
  Sex: Female

DRUGS (1)
  1. XELODA [Suspect]
     Indication: BREAST CANCER
     Dosage: 1000 MG AM 1000 MG PM
     Route: 048
     Dates: start: 20130809

REACTIONS (1)
  - Disease progression [Fatal]
